FAERS Safety Report 13977897 (Version 1)
Quarter: 2017Q3

REPORT INFORMATION
  Report Type: Spontaneous
  Country: US (occurrence: US)
  Receive Date: 20170915
  Receipt Date: 20170915
  Transmission Date: 20171128
  Serious: No
  Sender: FDA-Public Use
  Company Number: US-BAYER-2017-174274

PATIENT
  Sex: Male

DRUGS (2)
  1. LOTRIMIN AF ANTIFUNGAL [Suspect]
     Active Substance: MICONAZOLE NITRATE
     Indication: DRY SKIN
     Route: 061
  2. LOTRIMIN ULTRA [Suspect]
     Active Substance: BUTENAFINE HYDROCHLORIDE
     Route: 061

REACTIONS (3)
  - Drug screen positive [Unknown]
  - Hyperhidrosis [Unknown]
  - Intentional product misuse [Unknown]
